FAERS Safety Report 9009645 (Version 1)
Quarter: 2013Q1

REPORT INFORMATION
  Report Type: Spontaneous
  Country: FR (occurrence: FR)
  Receive Date: 20130110
  Receipt Date: 20130110
  Transmission Date: 20140127
  Serious: Yes (Hospitalization)
  Sender: FDA-Public Use
  Company Number: FR-ROCHE-1056994

PATIENT
  Sex: Male
  Weight: 71 kg

DRUGS (5)
  1. ROACTEMRA [Suspect]
     Indication: JUVENILE IDIOPATHIC ARTHRITIS
     Route: 042
     Dates: start: 20120319, end: 20120319
  2. KINERET [Concomitant]
     Indication: JUVENILE IDIOPATHIC ARTHRITIS
     Route: 058
     Dates: start: 20120328, end: 20120402
  3. INEXIUM [Concomitant]
     Route: 048
     Dates: start: 20120315, end: 20120402
  4. PRETERAX [Concomitant]
     Indication: HYPERTENSION
     Route: 048
  5. PRAVASTATINE [Concomitant]
     Indication: HYPERCHOLESTEROLAEMIA
     Route: 048

REACTIONS (3)
  - Toxic skin eruption [Recovered/Resolved]
  - Neutropenia [Recovered/Resolved]
  - Thrombocytopenia [Recovered/Resolved]
